FAERS Safety Report 10014284 (Version 2)
Quarter: 2014Q2

REPORT INFORMATION
  Report Type: Spontaneous
  Country: US (occurrence: US)
  Receive Date: 20140317
  Receipt Date: 20140421
  Transmission Date: 20141212
  Serious: No
  Sender: FDA-Public Use
  Company Number: US-BIOGENIDEC-2014BI021171

PATIENT
  Age: 35 Year
  Sex: Female

DRUGS (2)
  1. TECFIDERA [Suspect]
     Indication: MULTIPLE SCLEROSIS
     Route: 048
     Dates: start: 201305
  2. TECFIDERA [Suspect]
     Indication: MULTIPLE SCLEROSIS
     Route: 048
     Dates: start: 201309

REACTIONS (9)
  - Dizziness [Unknown]
  - Syncope [Unknown]
  - Throat tightness [Unknown]
  - Asthenia [Unknown]
  - Fatigue [Unknown]
  - Anaemia [Recovered/Resolved]
  - Loss of consciousness [Unknown]
  - Blood glucose decreased [Unknown]
  - Flushing [Unknown]
